FAERS Safety Report 4788059-3 (Version None)
Quarter: 2005Q4

REPORT INFORMATION
  Report Type: 
  Country: None (occurrence: None)
  Receive Date: 20051003
  Receipt Date: 20050923
  Transmission Date: 20060501
  Serious: Yes (Hospitalization)
  Sender: FDA-Public Use
  Company Number: 2005-09-1492

PATIENT

DRUGS (12)
  1. INTRON A [Suspect]
     Indication: METASTATIC RENAL CELL CARCINOMA
     Dosage: SUBCUTANEOUS
     Route: 058
  2. PROLEUKIN [Suspect]
     Indication: METASTATIC RENAL CELL CARCINOMA
     Dosage: SUBCUTANEOUS
     Route: 058
  3. FLUOROURACIL [Suspect]
     Indication: METASTATIC RENAL CELL CARCINOMA
     Dosage: INTRAVENOUS
     Route: 042
  4. METFORMN [Concomitant]
  5. OMEPRAZOLE [Concomitant]
  6. METOCLOPRAMIDE [Concomitant]
  7. PHENYTOIN [Concomitant]
  8. CYCLIZINE [Concomitant]
  9. OXYCONTIN [Concomitant]
  10. SENNA [Concomitant]
  11. NOZINAN [Concomitant]
  12. PARACETAMOL [Concomitant]

REACTIONS (7)
  - DEHYDRATION [None]
  - HEADACHE [None]
  - HYPOTENSION [None]
  - NAUSEA [None]
  - OXYGEN SATURATION DECREASED [None]
  - PYREXIA [None]
  - URINARY RETENTION [None]
